FAERS Safety Report 4981580-4 (Version None)
Quarter: 2006Q2

REPORT INFORMATION
  Report Type: 
  Country: None (occurrence: None)
  Receive Date: 20060420
  Receipt Date: 20060420
  Transmission Date: 20061013
  Serious: Yes (Hospitalization, Other)
  Sender: FDA-Public Use
  Company Number: None

PATIENT
  Age: 29 Year
  Sex: Female
  Weight: 61.2356 kg

DRUGS (3)
  1. YASMIN [Suspect]
     Indication: ORAL CONTRACEPTION
     Dosage: 1 PILL ONCE A DAY
     Dates: start: 20051205, end: 20060317
  2. CYCLOBENZAPRINE HCL [Concomitant]
  3. MIGRIN-A [Concomitant]

REACTIONS (23)
  - AMNESIA [None]
  - ASTHENIA [None]
  - BREAST TENDERNESS [None]
  - CRYING [None]
  - DEPRESSION [None]
  - DISTURBANCE IN SEXUAL AROUSAL [None]
  - DYSMENORRHOEA [None]
  - EYE SWELLING [None]
  - GENERAL PHYSICAL CONDITION ABNORMAL [None]
  - HEADACHE [None]
  - LAZINESS [None]
  - MENTAL IMPAIRMENT [None]
  - MIGRAINE [None]
  - MOOD ALTERED [None]
  - MOOD SWINGS [None]
  - MUSCLE SPASMS [None]
  - NAUSEA [None]
  - NECK PAIN [None]
  - SCREAMING [None]
  - SHOULDER PAIN [None]
  - STRESS [None]
  - SWELLING FACE [None]
  - TREATMENT NONCOMPLIANCE [None]
